FAERS Safety Report 14490017 (Version 1)
Quarter: 2018Q1

REPORT INFORMATION
  Report Type: Report from Study
  Country: None (occurrence: US)
  Receive Date: 20180206
  Receipt Date: 20180206
  Transmission Date: 20180509
  Serious: Yes (Other)
  Sender: FDA-Public Use
  Company Number: US-ABBVIE-18K-163-2210101-00

PATIENT
  Age: 31 Year
  Sex: Female
  Weight: 63.56 kg

DRUGS (5)
  1. PRENATAL VITAMINS [Concomitant]
     Active Substance: VITAMINS
     Indication: PRODUCT USED FOR UNKNOWN INDICATION
  2. HUMIRA [Suspect]
     Active Substance: ADALIMUMAB
     Route: 058
     Dates: start: 2016
  3. METHERGINE [Interacting]
     Active Substance: METHYLERGONOVINE MALEATE
     Indication: PRODUCT USED FOR UNKNOWN INDICATION
     Route: 065
  4. HUMIRA [Suspect]
     Active Substance: ADALIMUMAB
     Indication: CROHN^S DISEASE
     Route: 058
     Dates: start: 201506, end: 2016
  5. IMURAN [Concomitant]
     Active Substance: AZATHIOPRINE
     Indication: PRODUCT USED FOR UNKNOWN INDICATION

REACTIONS (14)
  - Anal fistula [Recovered/Resolved]
  - Anorectal discomfort [Recovered/Resolved]
  - Live birth [Unknown]
  - Tremor [Recovered/Resolved]
  - Crohn^s disease [Recovered/Resolved]
  - Afterbirth pain [Recovered/Resolved]
  - Seizure [Recovered/Resolved]
  - Muscle tightness [Recovered/Resolved]
  - Impaired healing [Recovered/Resolved]
  - Exposure during pregnancy [Unknown]
  - Incision site swelling [Recovered/Resolved]
  - Aphasia [Recovered/Resolved]
  - Anal abscess [Recovered/Resolved]
  - Anal pruritus [Recovered/Resolved]

NARRATIVE: CASE EVENT DATE: 20170729
